FAERS Safety Report 11607433 (Version 2)
Quarter: 2015Q4

REPORT INFORMATION
  Report Type: Report from Study
  Country: US (occurrence: US)
  Receive Date: 20151007
  Receipt Date: 20151120
  Transmission Date: 20160304
  Serious: Yes (Hospitalization)
  Sender: FDA-Public Use
  Company Number: US-BRISTOL-MYERS SQUIBB COMPANY-BMS-2015-064939

PATIENT
  Age: 17 Year
  Sex: Male
  Weight: 68.8 kg

DRUGS (8)
  1. CRIZOTINIB [Concomitant]
     Active Substance: CRIZOTINIB
     Indication: ANAPLASTIC LARGE-CELL LYMPHOMA
     Dosage: 165 MG/M2, BID
     Route: 042
     Dates: end: 20140719
  2. METHOTREXATE [Concomitant]
     Active Substance: METHOTREXATE
     Indication: ANAPLASTIC LARGE-CELL LYMPHOMA
     Dosage: 1 DF, QCYCLE 7.5-12MG
     Route: 037
     Dates: start: 20140708
  3. ETOPOSIDE PHOSPHATE [Suspect]
     Active Substance: ETOPOSIDE PHOSPHATE
     Indication: ANAPLASTIC LARGE-CELL LYMPHOMA
     Dosage: 100 MG/M2, QCYCLE
     Route: 042
  4. DEXAMETHASONE. [Concomitant]
     Active Substance: DEXAMETHASONE
     Indication: PRODUCT USED FOR UNKNOWN INDICATION
     Dosage: UNK
     Route: 065
     Dates: start: 20140708
  5. HYDROCORTISONE                     /00028602/ [Concomitant]
     Active Substance: HYDROCORTISONE
     Indication: PRODUCT USED FOR UNKNOWN INDICATION
     Dosage: UNK
     Route: 037
     Dates: start: 20140708
  6. CYCLOPHOSPHAMIDE. [Concomitant]
     Active Substance: CYCLOPHOSPHAMIDE
     Indication: ANAPLASTIC LARGE-CELL LYMPHOMA
     Dosage: 200 MG/M2, QCYCLE
     Route: 042
     Dates: start: 20140708
  7. IFOSFAMIDE. [Concomitant]
     Active Substance: IFOSFAMIDE
     Indication: ANAPLASTIC LARGE-CELL LYMPHOMA
     Dosage: 800 MG/M2, QCYCLE
     Route: 042
  8. CYTARABINE. [Concomitant]
     Active Substance: CYTARABINE
     Indication: PRODUCT USED FOR UNKNOWN INDICATION
     Dosage: UNK
     Route: 037
     Dates: start: 20150708

REACTIONS (2)
  - Hyponatraemia [Recovered/Resolved]
  - Mucosal inflammation [Recovered/Resolved with Sequelae]

NARRATIVE: CASE EVENT DATE: 20140719
